FAERS Safety Report 25902939 (Version 1)
Quarter: 2025Q4

REPORT INFORMATION
  Report Type: Report from Study
  Country: US (occurrence: US)
  Receive Date: 20251009
  Receipt Date: 20251009
  Transmission Date: 20260118
  Serious: Yes (Hospitalization)
  Sender: ABBVIE
  Company Number: US-ABBVIE-6494513

PATIENT
  Age: 56 Year
  Sex: Male

DRUGS (1)
  1. RINVOQ [Suspect]
     Active Substance: UPADACITINIB
     Indication: Psoriatic arthropathy
     Dosage: STRENGTH: 15 MG, LAST ADMIN DATE 2025
     Route: 048
     Dates: start: 20250919

REACTIONS (3)
  - Umbilical hernia [Unknown]
  - Diarrhoea [Unknown]
  - Chills [Unknown]

NARRATIVE: CASE EVENT DATE: 20250101
